FAERS Safety Report 19120232 (Version 1)
Quarter: 2021Q2

REPORT INFORMATION
  Report Type: Spontaneous
  Country: US (occurrence: US)
  Receive Date: 20210412
  Receipt Date: 20210412
  Transmission Date: 20210717
  Serious: Yes (Other)
  Sender: FDA-Public Use
  Company Number: US-DRREDDYS-USA/USA/21/0133869

PATIENT
  Age: 47 Year
  Sex: Female

DRUGS (1)
  1. ZENATANE [Suspect]
     Active Substance: ISOTRETINOIN
     Indication: PRODUCT USED FOR UNKNOWN INDICATION
     Dosage: RMA ISSUE DATE: 3/16/2021 6:00:59 PM
     Route: 048
     Dates: start: 20210316, end: 20210331

REACTIONS (3)
  - Breast tenderness [Unknown]
  - Exposure during pregnancy [Unknown]
  - Breast swelling [Unknown]
